FAERS Safety Report 9324552 (Version 3)
Quarter: 2013Q4

REPORT INFORMATION
  Report Type: Spontaneous
  Country: US (occurrence: US)
  Receive Date: 20130603
  Receipt Date: 20131122
  Transmission Date: 20140711
  Serious: Yes (Hospitalization)
  Sender: FDA-Public Use
  Company Number: US-B.I. PHARMACEUTICALS,INC./RIDGEFIELD-2013-BI-15291BP

PATIENT
  Age: 65 Year
  Sex: Male
  Weight: 99.79 kg

DRUGS (10)
  1. PRADAXA [Suspect]
     Indication: ANTICOAGULANT THERAPY
     Dosage: 300 MG
     Route: 048
     Dates: start: 20110621, end: 20120111
  2. ECOTRIN [Concomitant]
  3. FUROSEMIDE [Concomitant]
     Dates: start: 2004
  4. POTASSIUM CL [Concomitant]
     Dates: start: 2005
  5. CARVEDILOL [Concomitant]
  6. LISINOPRIL [Concomitant]
     Dates: start: 2004
  7. DIGOXIN [Concomitant]
  8. DILTIAZEM [Concomitant]
  9. KLOR-CON [Concomitant]
  10. DICLOFENAC SODIUM [Concomitant]

REACTIONS (4)
  - Gastrointestinal haemorrhage [Unknown]
  - Anaemia [Unknown]
  - Syncope [Unknown]
  - Coagulopathy [Unknown]
